FAERS Safety Report 24612320 (Version 1)
Quarter: 2024Q4

REPORT INFORMATION
  Report Type: Spontaneous
  Country: US (occurrence: US)
  Receive Date: 20241113
  Receipt Date: 20241113
  Transmission Date: 20250115
  Serious: No
  Sender: AMNEAL
  Company Number: US-AMNEAL PHARMACEUTICALS-2024-AMRX-02421

PATIENT
  Sex: Female

DRUGS (3)
  1. HYDROXYZINE HYDROCHLORIDE [Suspect]
     Active Substance: HYDROXYZINE HYDROCHLORIDE
     Indication: Skin burning sensation
     Dosage: UNK
     Route: 065
     Dates: start: 202406
  2. OCALIVA [Suspect]
     Active Substance: OBETICHOLIC ACID
     Indication: Primary biliary cholangitis
     Dosage: 05 MILLIGRAM, QD
     Route: 048
     Dates: start: 20240510, end: 20240605
  3. PANTOPRAZOLE SODIUM [Concomitant]
     Active Substance: PANTOPRAZOLE SODIUM
     Indication: Gastrointestinal disorder
     Route: 065

REACTIONS (3)
  - Nausea [Not Recovered/Not Resolved]
  - Abdominal distension [Unknown]
  - Fatigue [Not Recovered/Not Resolved]
